FAERS Safety Report 18571146 (Version 1)
Quarter: 2020Q4

REPORT INFORMATION
  Report Type: Spontaneous
  Country: CN (occurrence: CN)
  Receive Date: 20201202
  Receipt Date: 20201202
  Transmission Date: 20210114
  Serious: Yes (Hospitalization)
  Sender: FDA-Public Use
  Company Number: CN-ASTRAZENECA-2020SF58966

PATIENT
  Age: 72 Year
  Sex: Female

DRUGS (2)
  1. OSIMERTINIB MESYLATE. [Suspect]
     Active Substance: OSIMERTINIB MESYLATE
     Indication: POISONING
     Route: 048
     Dates: start: 20201031, end: 20201116
  2. OSIMERTINIB MESYLATE. [Suspect]
     Active Substance: OSIMERTINIB MESYLATE
     Indication: IMMUNOSUPPRESSANT DRUG LEVEL
     Route: 048
     Dates: start: 20201031, end: 20201116

REACTIONS (3)
  - Organising pneumonia [Recovering/Resolving]
  - Asthma [Unknown]
  - Pulmonary oedema [Recovering/Resolving]

NARRATIVE: CASE EVENT DATE: 20201111
